FAERS Safety Report 15852215 (Version 1)
Quarter: 2018Q4

REPORT INFORMATION
  Report Type: Spontaneous
  Country: US (occurrence: US)
  Receive Date: 20181227
  Receipt Date: 20181227
  Transmission Date: 20190205
  Serious: Yes (Death, Life-Threatening, Hospitalization)
  Sender: FDA-Public Use
  Company Number: None

PATIENT
  Age: 53 Year
  Sex: Male
  Weight: 121 kg

DRUGS (2)
  1. VANCOMYCIN 1.0 GM [Suspect]
     Active Substance: VANCOMYCIN HYDROCHLORIDE
     Indication: OSTEOMYELITIS
     Dosage: ?          OTHER FREQUENCY:X 12 DOSES;?
     Route: 042
     Dates: start: 20180619, end: 20180619
  2. VANCOMYCIN 1.0 GM [Suspect]
     Active Substance: VANCOMYCIN HYDROCHLORIDE
     Indication: SKIN INFECTION
     Dosage: ?          OTHER FREQUENCY:X 12 DOSES;?
     Route: 042
     Dates: start: 20180619, end: 20180619

REACTIONS (4)
  - Dialysis [None]
  - Nausea [None]
  - Unresponsive to stimuli [None]
  - Blood pressure systolic increased [None]

NARRATIVE: CASE EVENT DATE: 20180619
